FAERS Safety Report 6548282-4 (Version None)
Quarter: 2010Q1

REPORT INFORMATION
  Report Type: 
  Country: None (occurrence: None)
  Receive Date: 20100124
  Receipt Date: 20090420
  Transmission Date: 20100710
  Serious: No
  Sender: FDA-Public Use
  Company Number: US-ALLERGAN-0905437US

PATIENT
  Age: 77 Year
  Sex: Male

DRUGS (2)
  1. RESTASIS [Suspect]
     Indication: DRY EYE
     Dosage: 1 GTT, BID
     Route: 047
     Dates: start: 20090325, end: 20090407
  2. RESTASIS [Suspect]
     Dosage: 1 GTT, BID
     Route: 047
     Dates: start: 20090408

REACTIONS (1)
  - EYE PAIN [None]
